FAERS Safety Report 20045047 (Version 2)
Quarter: 2021Q4

REPORT INFORMATION
  Report Type: Spontaneous
  Country: DE (occurrence: DE)
  Receive Date: 20211108
  Receipt Date: 20211209
  Transmission Date: 20220303
  Serious: Yes (Other)
  Sender: FDA-Public Use
  Company Number: DE-JNJFOC-20211039997

PATIENT
  Age: 23 Year
  Sex: Male

DRUGS (11)
  1. ABILIFY [Suspect]
     Active Substance: ARIPIPRAZOLE
     Indication: Product used for unknown indication
     Dosage: 10 MG
     Route: 065
     Dates: start: 20210315, end: 20210426
  2. ABILIFY [Suspect]
     Active Substance: ARIPIPRAZOLE
     Dosage: 5 MG
     Route: 065
     Dates: start: 20210427, end: 20210430
  3. RISPERDAL [Suspect]
     Active Substance: RISPERIDONE
     Indication: Schizophrenia
     Dosage: 2 MG
     Route: 048
     Dates: start: 20210228, end: 20210228
  4. RISPERDAL [Suspect]
     Active Substance: RISPERIDONE
     Dosage: 4 MG
     Route: 048
     Dates: start: 20210302, end: 20210302
  5. RISPERDAL [Suspect]
     Active Substance: RISPERIDONE
     Dosage: 5 MG
     Route: 048
     Dates: start: 20210303, end: 20210303
  6. RISPERDAL [Suspect]
     Active Substance: RISPERIDONE
     Dosage: 3 MG
     Route: 048
     Dates: start: 20210301, end: 20210301
  7. RISPERDAL [Suspect]
     Active Substance: RISPERIDONE
     Dosage: 6 MG
     Route: 048
     Dates: start: 20210304, end: 20210315
  8. FOLIC ACID [Concomitant]
     Active Substance: FOLIC ACID
     Indication: Product used for unknown indication
     Dosage: 5 MG
     Route: 048
     Dates: start: 20210228, end: 20210417
  9. DIAZEPAM [Concomitant]
     Active Substance: DIAZEPAM
     Indication: Product used for unknown indication
     Dosage: 5 MG
     Route: 065
  10. HERBALS\PLANTAGO OVATA LEAF [Concomitant]
     Active Substance: HERBALS\PLANTAGO OVATA LEAF
     Indication: Product used for unknown indication
     Dosage: 1 BAG
     Route: 065
     Dates: start: 20210228, end: 20210331
  11. VITAMINA D [ERGOCALCIFEROL] [Concomitant]
     Indication: Product used for unknown indication
     Dosage: 1000 IU
     Route: 065
     Dates: start: 20210228, end: 20210417

REACTIONS (5)
  - Blood prolactin abnormal [Recovered/Resolved]
  - Hypokinesia [Recovered/Resolved]
  - Erectile dysfunction [Recovered/Resolved]
  - Parkinsonism [Recovered/Resolved]
  - Salivary hypersecretion [Recovered/Resolved]

NARRATIVE: CASE EVENT DATE: 20210316
